FAERS Safety Report 17346227 (Version 2)
Quarter: 2020Q2

REPORT INFORMATION
  Report Type: Report from Study
  Country: BR (occurrence: BR)
  Receive Date: 20200129
  Receipt Date: 20200405
  Transmission Date: 20200713
  Serious: Yes (Other)
  Sender: FDA-Public Use
  Company Number: BR-BRISTOL-MYERS SQUIBB COMPANY-BMS-2017-072925

PATIENT
  Age: 76 Year
  Sex: Female

DRUGS (3)
  1. OMEPRAZOLE. [Concomitant]
     Active Substance: OMEPRAZOLE
     Indication: PRODUCT USED FOR UNKNOWN INDICATION
     Dosage: UNK
     Route: 065
  2. ABATACEPT [Suspect]
     Active Substance: ABATACEPT
     Indication: PRODUCT USED FOR UNKNOWN INDICATION
     Dosage: 250 MG, QMO
     Route: 042
  3. ABATACEPT [Suspect]
     Active Substance: ABATACEPT
     Indication: RHEUMATOID ARTHRITIS
     Dosage: UNK, QWK
     Route: 058

REACTIONS (9)
  - Cataract [Recovered/Resolved]
  - Musculoskeletal pain [Unknown]
  - Influenza [Recovered/Resolved]
  - Arthralgia [Unknown]
  - Nervousness [Unknown]
  - Prescribed underdose [Unknown]
  - Pain in extremity [Unknown]
  - Agitation [Unknown]
  - Deformity [Unknown]

NARRATIVE: CASE EVENT DATE: 20200113
